FAERS Safety Report 4819903-9 (Version None)
Quarter: 2005Q4

REPORT INFORMATION
  Report Type: 
  Country: None (occurrence: None)
  Receive Date: 20051103
  Receipt Date: 20030306
  Transmission Date: 20060501
  Serious: Yes (Death, Hospitalization, Disabling)
  Sender: FDA-Public Use
  Company Number: US-MERCK-0303USA00625

PATIENT
  Age: 56 Year
  Sex: Male
  Weight: 64 kg

DRUGS (7)
  1. VIOXX [Suspect]
     Indication: ARTHRITIS
     Route: 048
     Dates: start: 20010210, end: 20010228
  2. VIOXX [Suspect]
     Indication: OSTEOARTHRITIS
     Route: 048
     Dates: start: 20010210, end: 20010228
  3. TYLENOL (CAPLET) [Concomitant]
     Indication: ARTHRITIS
     Route: 065
  4. PREDNISONE [Concomitant]
     Indication: ARTHRITIS
     Route: 065
     Dates: start: 20010123, end: 20010125
  5. PREDNISONE [Concomitant]
     Route: 048
     Dates: start: 20010126, end: 20010128
  6. PREDNISONE [Concomitant]
     Route: 065
     Dates: start: 20010129
  7. LOMOTIL [Concomitant]
     Route: 065

REACTIONS (22)
  - ALANINE AMINOTRANSFERASE INCREASED [None]
  - BLOOD ALKALINE PHOSPHATASE INCREASED [None]
  - CARDIOVASCULAR DISORDER [None]
  - CATHETER SITE DISCHARGE [None]
  - CHOLELITHIASIS [None]
  - DEHYDRATION [None]
  - GASTRITIS [None]
  - HAEMATEMESIS [None]
  - HYDRONEPHROSIS [None]
  - JOINT EFFUSION [None]
  - METASTATIC NEOPLASM [None]
  - OESOPHAGEAL STENOSIS [None]
  - OESOPHAGITIS [None]
  - PNEUMONIA [None]
  - RENAL FAILURE ACUTE [None]
  - RESPIRATORY ARREST [None]
  - SEPTIC SHOCK [None]
  - SMALL INTESTINAL OBSTRUCTION [None]
  - UPPER GASTROINTESTINAL HAEMORRHAGE [None]
  - URINARY RETENTION [None]
  - URINARY TRACT INFECTION [None]
  - URINARY TRACT OBSTRUCTION [None]
